FAERS Safety Report 10015496 (Version 3)
Quarter: 2022Q2

REPORT INFORMATION
  Report Type: Spontaneous
  Country: FR (occurrence: FR)
  Receive Date: 20140317
  Receipt Date: 20220531
  Transmission Date: 20220721
  Serious: Yes (Hospitalization, Other)
  Sender: FDA-Public Use
  Company Number: PHHY2014FR029747

PATIENT
  Sex: Male

DRUGS (7)
  1. CARBAMAZEPINE [Interacting]
     Active Substance: CARBAMAZEPINE
     Indication: Epilepsy
     Dosage: UNK
     Route: 065
     Dates: start: 2010
  2. OLANZAPINE [Interacting]
     Active Substance: OLANZAPINE
     Indication: Psychotic disorder
     Dosage: UNK
     Route: 065
  3. PIPERACILLIN [Concomitant]
     Active Substance: PIPERACILLIN
     Indication: Brain abscess
     Dosage: UNK
     Route: 065
  4. CYAMEMAZINE [Concomitant]
     Active Substance: CYAMEMAZINE
     Indication: Psychotic disorder
     Route: 065
  5. CEFOTAXIME [Concomitant]
     Active Substance: CEFOTAXIME SODIUM
     Indication: Brain abscess
     Dosage: UNK
     Route: 065
  6. FOSFOMYCIN [Concomitant]
     Active Substance: FOSFOMYCIN
     Indication: Brain abscess
     Dosage: UNK
     Route: 065
  7. RIFAMPIN [Concomitant]
     Active Substance: RIFAMPIN
     Indication: Brain abscess
     Dosage: UNK
     Route: 065

REACTIONS (12)
  - Drug reaction with eosinophilia and systemic symptoms [Recovered/Resolved]
  - Rash maculo-papular [Recovered/Resolved]
  - Pyrexia [Recovered/Resolved]
  - Hepatic cytolysis [Recovered/Resolved]
  - Alanine aminotransferase increased [Recovered/Resolved]
  - Leukocytosis [Recovered/Resolved]
  - Gamma-glutamyltransferase increased [Recovered/Resolved]
  - Blood alkaline phosphatase increased [Recovered/Resolved]
  - Lymphadenopathy [Recovered/Resolved]
  - Cholestasis [Recovered/Resolved]
  - Cross sensitivity reaction [Unknown]
  - Drug interaction [Unknown]
